FAERS Safety Report 5628527-5 (Version None)
Quarter: 2008Q1

REPORT INFORMATION
  Report Type: 
  Country: None (occurrence: None)
  Receive Date: 20080215
  Receipt Date: 20080203
  Transmission Date: 20080703
  Serious: Yes (Other)
  Sender: FDA-Public Use
  Company Number: US-PFIZER INC-2008010477

PATIENT
  Sex: Male
  Weight: 125 kg

DRUGS (8)
  1. LYRICA [Suspect]
     Indication: NEUROPATHY PERIPHERAL
     Route: 048
  2. COREG [Concomitant]
  3. ALLOPURINOL [Concomitant]
  4. TORSEMIDE [Concomitant]
  5. POTASSIUM CHLORIDE [Concomitant]
  6. LISINOPRIL [Concomitant]
  7. WARFARIN SODIUM [Concomitant]
  8. DIGOXIN [Concomitant]

REACTIONS (12)
  - ABASIA [None]
  - ARTHRALGIA [None]
  - CATARACT OPERATION [None]
  - CONSTIPATION [None]
  - FALL [None]
  - FLUID RETENTION [None]
  - GASTROINTESTINAL MOTILITY DISORDER [None]
  - MUSCLE SPASMS [None]
  - MYALGIA [None]
  - OEDEMA PERIPHERAL [None]
  - PAIN IN EXTREMITY [None]
  - WEIGHT INCREASED [None]
